FAERS Safety Report 10187667 (Version 1)
Quarter: 2014Q2

REPORT INFORMATION
  Report Type: Spontaneous
  Country: US (occurrence: US)
  Receive Date: 20140522
  Receipt Date: 20140522
  Transmission Date: 20141212
  Serious: No
  Sender: FDA-Public Use
  Company Number: US-SANOFI-AVENTIS-2013SA077701

PATIENT
  Sex: 0
  Weight: 90 kg

DRUGS (2)
  1. LANTUS SOLOSTAR [Suspect]
     Dosage: DOSE:7 UNIT(S)
     Route: 051
  2. SOLOSTAR [Concomitant]

REACTIONS (11)
  - Weight increased [Unknown]
  - Hunger [Recovered/Resolved]
  - Listless [Unknown]
  - Fatigue [Recovered/Resolved]
  - Asthenia [Unknown]
  - Depression [Unknown]
  - Injection site swelling [Unknown]
  - Contusion [Unknown]
  - Pruritus [Unknown]
  - Discomfort [Unknown]
  - Drug dose omission [Unknown]
